FAERS Safety Report 17620337 (Version 1)
Quarter: 2020Q2

REPORT INFORMATION
  Report Type: Spontaneous
  Country: US (occurrence: US)
  Receive Date: 20200403
  Receipt Date: 20200403
  Transmission Date: 20200713
  Serious: Yes (Other)
  Sender: FDA-Public Use
  Company Number: US-PFIZER INC-2020135808

PATIENT
  Age: 75 Year
  Sex: Male

DRUGS (6)
  1. DOXAZOSIN [Concomitant]
     Active Substance: DOXAZOSIN MESYLATE
     Dosage: 1100 MG, TWICE A DAY (BID)
  2. AMLODIPINE [Concomitant]
     Active Substance: AMLODIPINE BESYLATE
     Dosage: 5 MG, TWICE A DAY
  3. INSPRA [Suspect]
     Active Substance: EPLERENONE
     Indication: PRIMARY HYPERALDOSTERONISM
     Dosage: 50 MG, 2X/DAY
     Route: 048
  4. INSPRA [Suspect]
     Active Substance: EPLERENONE
     Indication: ADRENAL DISORDER
  5. INSPRA [Suspect]
     Active Substance: EPLERENONE
     Indication: SECONDARY HYPERTENSION
     Dosage: 50 MG, DAILY
     Route: 048
  6. LOSARTAN. [Suspect]
     Active Substance: LOSARTAN

REACTIONS (2)
  - Hypotension [Recovered/Resolved]
  - Hyperkalaemia [Recovered/Resolved]
